FAERS Safety Report 5959263-3 (Version None)
Quarter: 2008Q4

REPORT INFORMATION
  Report Type: 
  Country: None (occurrence: None)
  Receive Date: 20081120
  Receipt Date: 20081020
  Transmission Date: 20090506
  Serious: No
  Sender: FDA-Public Use
  Company Number: US-BAYER-200836335NA

PATIENT
  Age: 32 Year
  Sex: Female

DRUGS (2)
  1. ULTRAVIST (PHARMACY BULK) [Suspect]
     Indication: COMPUTERISED TOMOGRAM ABDOMEN
     Dosage: TOTAL DAILY DOSE: 100 ML  UNIT DOSE: 500 ML
     Route: 042
     Dates: start: 20081016, end: 20081016
  2. ORAL CONTRAST [Concomitant]
     Indication: COMPUTERISED TOMOGRAM ABDOMEN
     Route: 048
     Dates: start: 20081016, end: 20081016

REACTIONS (1)
  - URTICARIA [None]
